FAERS Safety Report 19777690 (Version 2)
Quarter: 2021Q3

REPORT INFORMATION
  Report Type: Spontaneous
  Country: US (occurrence: US)
  Receive Date: 20210902
  Receipt Date: 20210927
  Transmission Date: 20211014
  Serious: Yes (Other)
  Sender: FDA-Public Use
  Company Number: US-SA-2021SA288709

PATIENT
  Age: 50 Year
  Sex: Female
  Weight: 45 kg

DRUGS (11)
  1. VITAMIN D3 [Concomitant]
     Active Substance: CHOLECALCIFEROL
  2. ARMOUR THYROID [Concomitant]
     Active Substance: THYROID, PORCINE
     Dosage: 14 MG
  3. MAGNESIUM [Concomitant]
     Active Substance: MAGNESIUM
  4. RYBELSUS [Concomitant]
     Active Substance: SEMAGLUTIDE
  5. XANAX [Concomitant]
     Active Substance: ALPRAZOLAM
  6. RIZATRIPTAN. [Concomitant]
     Active Substance: RIZATRIPTAN
     Indication: MIGRAINE
  7. VITAMIN K2 [MENAQUINONE] [Concomitant]
     Active Substance: MENAQUINONE 6
  8. AUBAGIO [Suspect]
     Active Substance: TERIFLUNOMIDE
     Indication: MIGRAINE
     Dosage: 14 MG, QD
     Route: 048
     Dates: start: 202009
  9. H.P. ACTHAR [Concomitant]
     Active Substance: CORTICOTROPIN
  10. AUBAGIO [Suspect]
     Active Substance: TERIFLUNOMIDE
     Indication: MULTIPLE SCLEROSIS
  11. AUBAGIO [Suspect]
     Active Substance: TERIFLUNOMIDE
     Indication: ANXIETY DISORDER

REACTIONS (7)
  - Product use in unapproved indication [Unknown]
  - Fatigue [Unknown]
  - Urinary incontinence [Unknown]
  - Back pain [Unknown]
  - Multiple sclerosis relapse [Unknown]
  - Vitamin D deficiency [Unknown]
  - Urticaria [Unknown]

NARRATIVE: CASE EVENT DATE: 202009
